FAERS Safety Report 8173768-9 (Version None)
Quarter: 2012Q1

REPORT INFORMATION
  Report Type: 
  Country: None (occurrence: None)
  Receive Date: 20120224
  Receipt Date: 20120213
  Transmission Date: 20120608
  Serious: Yes (Other)
  Sender: FDA-Public Use
  Company Number: 1000024225

PATIENT
  Age: 53 Year
  Sex: Male

DRUGS (2)
  1. VIIBRYD [Suspect]
     Indication: MAJOR DEPRESSION
     Dosage: 10 MG (10 MG,L IN 1 D), ORAL
     Route: 048
     Dates: start: 20110914, end: 20110901
  2. BENADRYL (DIPHENHYDRAMINE)(DIPHENHYDRAMINE) [Concomitant]

REACTIONS (2)
  - GRAND MAL CONVULSION [None]
  - TONGUE BITING [None]
